FAERS Safety Report 7973391-2 (Version None)
Quarter: 2011Q4

REPORT INFORMATION
  Report Type: 
  Country: None (occurrence: None)
  Receive Date: 20111213
  Receipt Date: 20111003
  Transmission Date: 20120403
  Serious: No
  Sender: FDA-Public Use
  Company Number: US-AMGEN-USASP2011050878

PATIENT
  Age: 73 Year
  Sex: Female

DRUGS (2)
  1. LOSARTAN/HYDROCHLOROTHIAZIDE GENERIC HEALTH [Concomitant]
     Dosage: UNK
  2. ARANESP [Suspect]
     Indication: MYELOFIBROSIS
     Dates: start: 20110928

REACTIONS (1)
  - DYSACUSIS [None]
